FAERS Safety Report 8515666-4 (Version None)
Quarter: 2012Q3

REPORT INFORMATION
  Report Type: 
  Country: None (occurrence: None)
  Receive Date: 20120717
  Receipt Date: 20120711
  Transmission Date: 20120928
  Serious: Yes (Hospitalization)
  Sender: FDA-Public Use
  Company Number: PHHY2012MX060656

PATIENT
  Sex: Female

DRUGS (2)
  1. ZOLEDRONOC ACID [Suspect]
     Indication: OSTEOPOROSIS
     Dosage: 5MG/100 ML /YEAR
     Route: 042
  2. PHENYTOIN SODIUM [Concomitant]
     Dosage: 1 DF, ONCE/SINGLE

REACTIONS (1)
  - BRAIN NEOPLASM [None]
